FAERS Safety Report 20924554 (Version 1)
Quarter: 2022Q2

REPORT INFORMATION
  Report Type: Spontaneous
  Country: GB (occurrence: GB)
  Receive Date: 20220607
  Receipt Date: 20220607
  Transmission Date: 20220720
  Serious: Yes (Death, Life-Threatening, Other)
  Sender: FDA-Public Use
  Company Number: GB-CELGENE-GBR-20210901527

PATIENT
  Age: 77 Year
  Sex: Male

DRUGS (8)
  1. AZACITIDINE [Suspect]
     Active Substance: AZACITIDINE
     Indication: Myelodysplastic syndrome
     Dosage: 75 MILLIGRAM/SQ. METER, FREQUENCY TEXT: DAYS 1-9 OF EACH CYCLE
     Route: 058
     Dates: start: 20210517, end: 20210817
  2. VENETOCLAX [Suspect]
     Active Substance: VENETOCLAX
     Indication: Myelodysplastic syndrome
     Dosage: 1 DOSAGE FORM, BID
     Route: 048
     Dates: start: 20210517, end: 20210822
  3. ACYCLOVIR [Concomitant]
     Active Substance: ACYCLOVIR
     Indication: Antiviral prophylaxis
     Dosage: 200 MILLIGRAM, TID, 600 MILLIGRAM
     Route: 048
     Dates: start: 20210517
  4. FERROUS FUMARATE [Concomitant]
     Active Substance: FERROUS FUMARATE
     Indication: Iron deficiency
     Dosage: 210 MILLIGRAM, BID, 420 MILLIGRAM
     Route: 048
     Dates: start: 20210809
  5. HALOPERIDOL [Concomitant]
     Active Substance: HALOPERIDOL
     Indication: Hiccups
     Dosage: 500 MICROGRAM, PRN
     Route: 048
     Dates: start: 20210720
  6. ONDANSETRON [Concomitant]
     Active Substance: ONDANSETRON
     Indication: Nausea
     Dosage: 4 MILLIGRAM, BID, 8 MILLIGRAM
     Route: 048
     Dates: start: 20210809
  7. ONDANSETRON [Concomitant]
     Active Substance: ONDANSETRON
     Indication: Vomiting
  8. LIDOCAINE [Concomitant]
     Active Substance: LIDOCAINE
     Indication: Local anaesthesia
     Dosage: FREQUENCY TEXT: AS REQUIRED
     Route: 061
     Dates: start: 20210624

REACTIONS (4)
  - Cerebral haemorrhage [Fatal]
  - Pneumonia [Fatal]
  - Fall [Fatal]
  - Loss of consciousness [Fatal]

NARRATIVE: CASE EVENT DATE: 20210828
